FAERS Safety Report 7631474-0 (Version None)
Quarter: 2011Q3

REPORT INFORMATION
  Report Type: 
  Country: None (occurrence: None)
  Receive Date: 20110725
  Receipt Date: 20110714
  Transmission Date: 20111222
  Serious: Yes (Other)
  Sender: FDA-Public Use
  Company Number: PHHY2011GB64000

PATIENT
  Age: 58 Year
  Sex: Male

DRUGS (3)
  1. ASPIRIN [Suspect]
  2. ALBUTEROL [Concomitant]
  3. ASPIRIN [Suspect]
     Dosage: 300 MG, UNK

REACTIONS (15)
  - HIATUS HERNIA [None]
  - THROAT TIGHTNESS [None]
  - ANALGESIC ASTHMA SYNDROME [None]
  - WHEEZING [None]
  - ANGIOEDEMA [None]
  - ASTHMA [None]
  - NASAL POLYPS [None]
  - CARDIAC FAILURE ACUTE [None]
  - DYSPNOEA [None]
  - BRONCHIECTASIS [None]
  - GASTROOESOPHAGEAL REFLUX DISEASE [None]
  - HYPOTENSION [None]
  - URTICARIA [None]
  - CHEST DISCOMFORT [None]
  - TACHYCARDIA [None]
